FAERS Safety Report 16430629 (Version 5)
Quarter: 2019Q3

REPORT INFORMATION
  Report Type: Spontaneous
  Country: US (occurrence: US)
  Receive Date: 20190614
  Receipt Date: 20190926
  Transmission Date: 20191004
  Serious: Yes (Hospitalization, Other)
  Sender: FDA-Public Use
  Company Number: US-GLAXOSMITHKLINE-US2019GSK106342

PATIENT
  Sex: Female

DRUGS (4)
  1. OMEPRAZOLE. [Suspect]
     Active Substance: OMEPRAZOLE
     Dosage: 40 MG, QD
     Route: 065
  2. PREVACID [Suspect]
     Active Substance: LANSOPRAZOLE
     Indication: GASTROOESOPHAGEAL REFLUX DISEASE
     Dosage: 15 MG, QD
     Route: 065
  3. OMEPRAZOLE. [Suspect]
     Active Substance: OMEPRAZOLE
     Indication: GASTROOESOPHAGEAL REFLUX DISEASE
     Dosage: 20 MG, QD
     Route: 065
  4. PREVACID [Suspect]
     Active Substance: LANSOPRAZOLE
     Indication: GASTROOESOPHAGEAL REFLUX DISEASE
     Dosage: 30 MG, QD
     Route: 065

REACTIONS (15)
  - Renal failure [Unknown]
  - Hydroureter [Unknown]
  - Renal injury [Unknown]
  - Retroperitoneal fibrosis [Unknown]
  - Chronic kidney disease [Unknown]
  - Anuria [Unknown]
  - Acute kidney injury [Not Recovered/Not Resolved]
  - Renal artery stent placement [Unknown]
  - Urinary incontinence [Unknown]
  - Ureteric obstruction [Unknown]
  - Nephrolithiasis [Unknown]
  - Micturition urgency [Unknown]
  - Hydronephrosis [Unknown]
  - Dysuria [Unknown]
  - Pollakiuria [Unknown]
